FAERS Safety Report 5957737-2 (Version None)
Quarter: 2008Q4

REPORT INFORMATION
  Report Type: 
  Country: None (occurrence: None)
  Receive Date: 20081119
  Receipt Date: 20081112
  Transmission Date: 20090506
  Serious: Yes (Hospitalization, Other)
  Sender: FDA-Public Use
  Company Number: FR-JNJFOC-20080904779

PATIENT
  Age: 55 Year
  Sex: Female
  Weight: 117 kg

DRUGS (7)
  1. INFLIXIMAB [Suspect]
     Route: 042
  2. INFLIXIMAB [Suspect]
     Route: 042
  3. INFLIXIMAB [Suspect]
     Indication: PSORIASIS
     Route: 042
  4. LUTERAN [Concomitant]
     Indication: MENOPAUSE
     Route: 048
  5. HYDROCHLOROTHIAZIDE + BISOPROLOL [Concomitant]
     Indication: HYPERTENSION
     Route: 048
  6. SAFORELLE [Concomitant]
     Indication: PSORIASIS
     Route: 003
  7. DEXERYL [Concomitant]
     Indication: PSORIASIS
     Route: 003

REACTIONS (2)
  - COLON CANCER [None]
  - DIVERTICULAR PERFORATION [None]
